FAERS Safety Report 9375595 (Version 1)
Quarter: 2013Q2

REPORT INFORMATION
  Report Type: Spontaneous
  Country: GB (occurrence: GB)
  Receive Date: 20130628
  Receipt Date: 20130628
  Transmission Date: 20140414
  Serious: Yes (Other)
  Sender: FDA-Public Use
  Company Number: PHHY2013GB064655

PATIENT
  Sex: Male
  Weight: 82 kg

DRUGS (12)
  1. METFORMIN [Suspect]
     Indication: DIABETES MELLITUS
     Dosage: UNK UKN, UNK
     Route: 048
     Dates: start: 201010, end: 20130603
  2. PIOGLITAZONE [Suspect]
  3. ADCAL-D3 [Concomitant]
  4. BUTRANS//BUPRENORPHINE [Concomitant]
  5. OMEPRAZOLE [Concomitant]
     Dosage: UNK UKN, UNK
     Dates: start: 20130528
  6. SIMVADOR [Concomitant]
  7. CLOPIDOGREL [Concomitant]
     Dosage: UNK UKN, UNK
     Dates: start: 20130528
  8. CODEINE [Concomitant]
     Dosage: UNK UKN, UNK
     Dates: start: 20130528
  9. FUROSEMIDE [Concomitant]
     Dosage: UNK UKN, UNK
     Dates: start: 20130528
  10. PERINDOPRIL [Concomitant]
  11. PREDNISOLONE [Concomitant]
  12. TAMSULOSIN [Concomitant]

REACTIONS (1)
  - Cardiac failure [Recovering/Resolving]
